FAERS Safety Report 5612543-3 (Version None)
Quarter: 2008Q1

REPORT INFORMATION
  Report Type: 
  Country: None (occurrence: None)
  Receive Date: 20080204
  Receipt Date: 20080125
  Transmission Date: 20080703
  Serious: Yes (Other)
  Sender: FDA-Public Use
  Company Number: IT-ASTRAZENECA-2008AC00327

PATIENT

DRUGS (4)
  1. QUETIAPINE FUMARATE [Suspect]
     Indication: BORDERLINE PERSONALITY DISORDER
     Dosage: DAY ONE
     Route: 048
  2. QUETIAPINE FUMARATE [Suspect]
     Dosage: DAY 2
     Route: 048
  3. QUETIAPINE FUMARATE [Suspect]
     Dosage: DAY 3
     Route: 048
  4. QUETIAPINE FUMARATE [Suspect]
     Route: 048

REACTIONS (1)
  - THROMBOCYTOPENIA [None]
